FAERS Safety Report 9402826 (Version 1)
Quarter: 2013Q3

REPORT INFORMATION
  Report Type: Spontaneous
  Country: US (occurrence: None)
  Receive Date: 20130715
  Receipt Date: 20130715
  Transmission Date: 20140515
  Serious: Yes (Hospitalization, Other)
  Sender: FDA-Public Use
  Company Number: None

PATIENT
  Age: 20 Year
  Sex: Female
  Weight: 74.84 kg

DRUGS (2)
  1. TERBUTALINE [Suspect]
     Indication: ABDOMINAL PAIN UPPER
     Dates: start: 20130711, end: 20130711
  2. TERBUTALINE [Suspect]
     Indication: PAIN
     Dates: start: 20130711, end: 20130711

REACTIONS (10)
  - Toothache [None]
  - Hypoaesthesia oral [None]
  - Vision blurred [None]
  - Ear pain [None]
  - Eye pain [None]
  - Exposure during pregnancy [None]
  - Lip swelling [None]
  - Lip disorder [None]
  - Feeling abnormal [None]
  - Facial pain [None]
